FAERS Safety Report 14825821 (Version 4)
Quarter: 2018Q3

REPORT INFORMATION
  Report Type: Spontaneous
  Country: US (occurrence: US)
  Receive Date: 20180430
  Receipt Date: 20180813
  Transmission Date: 20181010
  Serious: Yes (Death)
  Sender: FDA-Public Use
  Company Number: US-PFIZER INC-2018172392

PATIENT
  Age: 70 Year
  Sex: Female
  Weight: 58 kg

DRUGS (6)
  1. SYNTHROID [Concomitant]
     Active Substance: LEVOTHYROXINE SODIUM
     Indication: HYPOTHYROIDISM
     Dosage: UNK
  2. IBRANCE [Suspect]
     Active Substance: PALBOCICLIB
     Dosage: 100 MG, UNK
     Dates: start: 2018, end: 2018
  3. IBRANCE [Suspect]
     Active Substance: PALBOCICLIB
     Indication: BREAST CANCER METASTATIC
     Dosage: 125 MG, CYCLIC (FOR 21 DAYS)
     Route: 048
     Dates: start: 201803, end: 201804
  4. IBRANCE [Suspect]
     Active Substance: PALBOCICLIB
     Dosage: 125 MG, CYCLIC (1 PO DAILY X 21D)/ (125MG PO DAILY X21D (28D CYCLE))
     Route: 048
     Dates: start: 20180401, end: 20180417
  5. SAVAYSA [Concomitant]
     Active Substance: EDOXABAN TOSYLATE
     Indication: BLOOD VISCOSITY INCREASED
     Dosage: 60 MG, 1X/DAY
     Route: 048
     Dates: start: 2017
  6. XARELTO [Concomitant]
     Active Substance: RIVAROXABAN
     Indication: BLOOD VISCOSITY INCREASED
     Dosage: UNK
     Dates: start: 2017

REACTIONS (6)
  - Neoplasm progression [Fatal]
  - Hepatic enzyme increased [Recovering/Resolving]
  - Bedridden [Unknown]
  - Neutrophil count decreased [Unknown]
  - Blood bilirubin increased [Not Recovered/Not Resolved]
  - Weight decreased [Unknown]

NARRATIVE: CASE EVENT DATE: 2018
